FAERS Safety Report 4950440-7 (Version None)
Quarter: 2006Q1

REPORT INFORMATION
  Report Type: 
  Country: None (occurrence: None)
  Receive Date: 20060322
  Receipt Date: 20060313
  Transmission Date: 20060701
  Serious: Yes (Other)
  Sender: FDA-Public Use
  Company Number: 2006PK00522

PATIENT
  Age: 29848 Day
  Sex: Female

DRUGS (4)
  1. NEXIUM [Suspect]
     Indication: HAEMATEMESIS
     Route: 048
     Dates: start: 20060217, end: 20060221
  2. ASPIRIN [Concomitant]
     Indication: DEMENTIA
     Route: 048
  3. MCP [Concomitant]
     Indication: VOMITING
     Route: 048
  4. TORSEMIDE [Concomitant]
     Indication: CARDIAC FAILURE
     Route: 048

REACTIONS (2)
  - BLISTER [None]
  - TOXIC EPIDERMAL NECROLYSIS [None]
